FAERS Safety Report 6028156-8 (Version None)
Quarter: 2008Q4

REPORT INFORMATION
  Report Type: 
  Country: None (occurrence: None)
  Receive Date: 20081231
  Receipt Date: 20081231
  Transmission Date: 20090506
  Serious: Yes (Other)
  Sender: FDA-Public Use
  Company Number: None

PATIENT
  Sex: Female
  Weight: 90.7194 kg

DRUGS (1)
  1. AVINZA [Suspect]
     Indication: FIBROMYALGIA
     Dosage: 1 60 MG EVERY 24 HOURS PO
     Route: 048
     Dates: start: 20081220, end: 20081221

REACTIONS (2)
  - RETCHING [None]
  - VOMITING [None]
